FAERS Safety Report 8091635-6 (Version None)
Quarter: 2012Q1

REPORT INFORMATION
  Report Type: 
  Country: None (occurrence: None)
  Receive Date: 20120129
  Receipt Date: 20110912
  Transmission Date: 20120608
  Serious: No
  Sender: FDA-Public Use
  Company Number: US-ABBOTT-11P-163-0853653-00

PATIENT
  Sex: Female
  Weight: 97.61 kg

DRUGS (1)
  1. HUMIRA [Suspect]
     Indication: RHEUMATOID ARTHRITIS
     Dates: start: 20110101

REACTIONS (15)
  - ANKLE DEFORMITY [None]
  - HEADACHE [None]
  - NODULE [None]
  - WRONG TECHNIQUE IN DRUG USAGE PROCESS [None]
  - KNEE DEFORMITY [None]
  - FIBROMYALGIA [None]
  - INCORRECT DOSE ADMINISTERED [None]
  - MACULAR DEGENERATION [None]
  - MYALGIA [None]
  - FALL [None]
  - RHEUMATOID ARTHRITIS [None]
  - ARTHRALGIA [None]
  - ARTHROPATHY [None]
  - FINGER DEFORMITY [None]
  - GAIT DISTURBANCE [None]
